FAERS Safety Report 14378255 (Version 4)
Quarter: 2019Q3

REPORT INFORMATION
  Report Type: Spontaneous
  Country: US (occurrence: US)
  Receive Date: 20180111
  Receipt Date: 20190717
  Transmission Date: 20191004
  Serious: No
  Sender: FDA-Public Use
  Company Number: US-ACTELION-A-NJ2018-165509

PATIENT
  Sex: Female
  Weight: 46.26 kg

DRUGS (6)
  1. TRACLEER [Suspect]
     Active Substance: BOSENTAN
     Indication: PULMONARY HYPERTENSION
     Dosage: 125 MG, BID
     Route: 048
  2. DILTIAZEM. [Concomitant]
     Active Substance: DILTIAZEM
  3. REVATIO [Concomitant]
     Active Substance: SILDENAFIL CITRATE
  4. TYVASO [Suspect]
     Active Substance: TREPROSTINIL
     Indication: PULMONARY HYPERTENSION
     Dosage: 0.6 MG/ML, 60 - 120 MCG QID
     Route: 055
     Dates: start: 20111121
  5. TYVASO [Suspect]
     Active Substance: TREPROSTINIL
     Dosage: 18- 78 MCG QID
     Route: 055
  6. COUMADIN [Concomitant]
     Active Substance: WARFARIN SODIUM

REACTIONS (7)
  - Cough [Unknown]
  - Asthenia [Unknown]
  - Product dose omission [Unknown]
  - Dysstasia [Unknown]
  - Fatigue [Unknown]
  - Influenza [Unknown]
  - Anxiety [Unknown]
